FAERS Safety Report 11809511 (Version 3)
Quarter: 2015Q4

REPORT INFORMATION
  Report Type: Spontaneous
  Country: US (occurrence: US)
  Receive Date: 20151208
  Receipt Date: 20151228
  Transmission Date: 20160305
  Serious: No
  Sender: FDA-Public Use
  Company Number: US-009507513-1511USA006116

PATIENT
  Age: 14 Year
  Sex: Female

DRUGS (1)
  1. NEXPLANON [Suspect]
     Active Substance: ETONOGESTREL
     Dosage: UNK
     Route: 059
     Dates: start: 201509, end: 20151112

REACTIONS (10)
  - Medical device site scab [Recovered/Resolved]
  - Implant site pain [Unknown]
  - Implant site cellulitis [Recovered/Resolved]
  - Implant site vesicles [Recovered/Resolved]
  - Implant site inflammation [Recovered/Resolved]
  - Implant site erythema [Recovered/Resolved]
  - Implant site discharge [Recovered/Resolved]
  - Injury [Unknown]
  - Implant site swelling [Recovered/Resolved]
  - Implant site infection [Unknown]

NARRATIVE: CASE EVENT DATE: 2015
